FAERS Safety Report 5746092-9 (Version None)
Quarter: 2008Q2

REPORT INFORMATION
  Report Type: 
  Country: None (occurrence: None)
  Receive Date: 20080522
  Receipt Date: 20080215
  Transmission Date: 20081010
  Serious: No
  Sender: FDA-Public Use
  Company Number: A0709989A

PATIENT
  Age: 72 Year
  Sex: Female

DRUGS (6)
  1. BACTROBAN [Suspect]
     Indication: SKIN INFECTION
     Dosage: 30G THREE TIMES PER DAY
     Route: 061
     Dates: start: 20070801, end: 20080212
  2. BACTROBAN [Suspect]
     Dosage: 22G THREE TIMES PER DAY
     Route: 061
     Dates: start: 20070801, end: 20080212
  3. ULTRAM [Concomitant]
  4. LYRICA [Concomitant]
  5. UNKNOWN MEDICATION [Concomitant]
  6. BACTROBAN [Concomitant]

REACTIONS (2)
  - FUNGAL SKIN INFECTION [None]
  - SKIN LESION [None]
